FAERS Safety Report 7056635-3 (Version None)
Quarter: 2010Q4

REPORT INFORMATION
  Report Type: 
  Country: None (occurrence: None)
  Receive Date: 20101004
  Receipt Date: 20100922
  Transmission Date: 20110411
  Serious: Yes (Hospitalization)
  Sender: FDA-Public Use
  Company Number: THYM-1001009

PATIENT
  Age: 38 Year
  Sex: Male
  Weight: 58 kg

DRUGS (16)
  1. THYMOGLOBULIN [Suspect]
     Indication: BONE MARROW CONDITIONING REGIMEN
     Dosage: 145 MG, QD, INTRAVENOUS
     Route: 042
     Dates: start: 20090313, end: 20090316
  2. LOXOPROFEN SODIUM (LOXOPROFEN SODIUM) [Concomitant]
  3. HYDROXYZINE HCL [Concomitant]
  4. METHYLPREDNISOLONE [Concomitant]
  5. METHYLPREDNISOLONE [Concomitant]
  6. CYCLOPHOSPHAMIDE [Concomitant]
  7. MEROPENEM [Concomitant]
  8. PREDNISOLONE ACETATE [Concomitant]
  9. MESNA [Concomitant]
  10. FUROSEMIDE [Concomitant]
  11. VORICONAZOLE [Concomitant]
  12. LANSOPRAZOLE [Concomitant]
  13. BACTRIM [Concomitant]
  14. URSODIOL [Concomitant]
  15. ACYCLOVIR [Concomitant]
  16. LIDOCAINE [Concomitant]

REACTIONS (2)
  - SINUS BRADYCARDIA [None]
  - STAPHYLOCOCCAL SEPSIS [None]
